FAERS Safety Report 10446231 (Version 1)
Quarter: 2014Q3

REPORT INFORMATION
  Report Type: Spontaneous
  Country: US (occurrence: US)
  Receive Date: 20140911
  Receipt Date: 20140911
  Transmission Date: 20150326
  Serious: Yes (Hospitalization)
  Sender: FDA-Public Use
  Company Number: US-ACCORD-025794

PATIENT

DRUGS (1)
  1. GEMCITABINE [Suspect]
     Active Substance: GEMCITABINE\GEMCITABINE HYDROCHLORIDE
     Indication: ADENOCARCINOMA PANCREAS

REACTIONS (6)
  - Fatigue [None]
  - Pallor [None]
  - Anuria [None]
  - Thrombotic thrombocytopenic purpura [Recovered/Resolved]
  - Haemolytic uraemic syndrome [Recovering/Resolving]
  - Dialysis [None]
